FAERS Safety Report 20473032 (Version 2)
Quarter: 2022Q1

REPORT INFORMATION
  Report Type: Spontaneous
  Country: UZ (occurrence: None)
  Receive Date: 20220215
  Receipt Date: 20220224
  Transmission Date: 20220424
  Serious: Yes (Hospitalization, Other)
  Sender: FDA-Public Use
  Company Number: UZ-ROCHE-3019733

PATIENT
  Sex: Male

DRUGS (1)
  1. RISDIPLAM [Suspect]
     Active Substance: RISDIPLAM
     Indication: Spinal muscular atrophy
     Dosage: 0.75 MG / ML, 1.2 MG, DAILY 1 HOUR AFTER MEAL, QUANTITY OF DAYS PER VIAL: 47, QUANTITY OF VIALS: 1
     Route: 065
     Dates: start: 20211229, end: 20220213

REACTIONS (3)
  - Somnolence [Unknown]
  - Mechanical ventilation [Unknown]
  - Tracheostomy [Unknown]
